FAERS Safety Report 18785204 (Version 1)
Quarter: 2021Q1

REPORT INFORMATION
  Report Type: Spontaneous
  Country: BE (occurrence: BE)
  Receive Date: 20210125
  Receipt Date: 20210125
  Transmission Date: 20210419
  Serious: Yes (Hospitalization, Other)
  Sender: FDA-Public Use
  Company Number: BE-AMGEN-BELSP2021008756

PATIENT
  Age: 51 Year
  Sex: Female

DRUGS (6)
  1. LEVOTHYROXINE. [Concomitant]
     Active Substance: LEVOTHYROXINE
     Dosage: UNK
  2. PREDNISOLONE. [Concomitant]
     Active Substance: PREDNISOLONE
     Dosage: UNK
  3. DARBEPOETIN ALFA [Suspect]
     Active Substance: DARBEPOETIN ALFA
     Indication: CONGENITAL CYSTIC KIDNEY DISEASE
     Dosage: UNK
     Route: 065
  4. LANREOTIDE [Concomitant]
     Active Substance: LANREOTIDE
     Dosage: UNK
  5. TACROLIMUS. [Concomitant]
     Active Substance: TACROLIMUS
     Dosage: UNK
  6. MYCOPHENOLATE MOFETIL. [Concomitant]
     Active Substance: MYCOPHENOLATE MOFETIL
     Dosage: UNK

REACTIONS (8)
  - End stage renal disease [Unknown]
  - Pneumocystis jirovecii pneumonia [Recovered/Resolved]
  - Chronic kidney disease [Unknown]
  - Systemic inflammatory response syndrome [Unknown]
  - Influenza [Unknown]
  - Pleural effusion [Unknown]
  - Sepsis [Unknown]
  - Hypercalcaemia [Recovered/Resolved]
